FAERS Safety Report 10022578 (Version 2)
Quarter: 2014Q1

REPORT INFORMATION
  Report Type: Spontaneous
  Country: BR (occurrence: BR)
  Receive Date: 20140319
  Receipt Date: 20140319
  Transmission Date: 20141002
  Serious: Yes (Hospitalization)
  Sender: FDA-Public Use
  Company Number: BR-MERCK-1306BRA011152

PATIENT
  Age: 33 Year
  Sex: Male
  Weight: 100 kg

DRUGS (2)
  1. PEG-INTRON [Suspect]
     Indication: HEPATITIS C
     Dosage: 120 MICROGRAM, QW
     Route: 058
     Dates: start: 20130308, end: 20131227
  2. RIBAVIRIN (NON MERCK) [Concomitant]
     Indication: HEPATITIS C
     Dosage: 1250 MG, QD
     Route: 048
     Dates: start: 20130308

REACTIONS (17)
  - Dyspnoea [Not Recovered/Not Resolved]
  - Chest pain [Not Recovered/Not Resolved]
  - Injection site haematoma [Not Recovered/Not Resolved]
  - Anisocytosis [Not Recovered/Not Resolved]
  - Underdose [Unknown]
  - Back pain [Not Recovered/Not Resolved]
  - Lip pain [Recovered/Resolved]
  - Alopecia [Not Recovered/Not Resolved]
  - Weight decreased [Not Recovered/Not Resolved]
  - Irritability [Not Recovered/Not Resolved]
  - Pyrexia [Not Recovered/Not Resolved]
  - Diarrhoea [Not Recovered/Not Resolved]
  - Asthenia [Not Recovered/Not Resolved]
  - Headache [Not Recovered/Not Resolved]
  - Chest discomfort [Not Recovered/Not Resolved]
  - Platelet count [Recovered/Resolved]
  - Thrombocytopenia [Recovered/Resolved]
